FAERS Safety Report 11594153 (Version 2)
Quarter: 2015Q4

REPORT INFORMATION
  Report Type: Report from Study
  Country: CZ (occurrence: CZ)
  Receive Date: 20151005
  Receipt Date: 20151223
  Transmission Date: 20160304
  Serious: Yes (Hospitalization, Other)
  Sender: FDA-Public Use
  Company Number: CZ-JNJFOC-20151000807

PATIENT
  Age: 63 Year
  Sex: Male
  Weight: 73 kg

DRUGS (6)
  1. REMICADE [Suspect]
     Active Substance: INFLIXIMAB
     Indication: ANKYLOSING SPONDYLITIS
     Dosage: 5MG/KG DOSE
     Route: 042
     Dates: start: 20090625, end: 20150625
  2. LAGOSA [Concomitant]
     Indication: HEPATIC STEATOSIS
     Route: 048
     Dates: start: 200906
  3. EGILOC [Concomitant]
     Indication: HYPERTENSION
     Dosage: 0.5 (UNSPECIFIED DOSAGE FORM) IN MORNING
     Route: 048
     Dates: start: 201510
  4. METOPROLOL [Concomitant]
     Active Substance: METOPROLOL
     Indication: HYPERTENSION
     Dosage: 0.5 (UNSPECIFIED DOSAGE) IN MORNING
     Route: 048
  5. ZOLPINOX [Concomitant]
     Indication: INSOMNIA
     Route: 048
     Dates: start: 201512
  6. RISENDROS [Concomitant]
     Indication: OSTEOPOROSIS
     Route: 048
     Dates: start: 100906

REACTIONS (3)
  - Oesophageal carcinoma [Unknown]
  - Anaemia [Not Recovered/Not Resolved]
  - Pneumonia [Recovered/Resolved]

NARRATIVE: CASE EVENT DATE: 20150814
